FAERS Safety Report 8610717-0 (Version None)
Quarter: 2012Q3

REPORT INFORMATION
  Report Type: 
  Country: None (occurrence: None)
  Receive Date: 20120822
  Receipt Date: 20120814
  Transmission Date: 20120928
  Serious: Yes (Other)
  Sender: FDA-Public Use
  Company Number: US-US-EMD SERONO, INC.-7155090

PATIENT
  Sex: Female
  Weight: 54 kg

DRUGS (7)
  1. LAMOTRIGINE [Concomitant]
     Indication: CONVULSION
  2. PHENERGAN HCL [Concomitant]
     Indication: PRODUCT USED FOR UNKNOWN INDICATION
  3. NORCO [Concomitant]
     Indication: PRODUCT USED FOR UNKNOWN INDICATION
  4. MORPHINE [Concomitant]
     Indication: PRODUCT USED FOR UNKNOWN INDICATION
  5. XANALEX [Concomitant]
     Indication: PRODUCT USED FOR UNKNOWN INDICATION
  6. REBIF [Suspect]
     Indication: MULTIPLE SCLEROSIS
     Route: 058
     Dates: start: 20100615
  7. ZANTAC [Concomitant]
     Indication: PRODUCT USED FOR UNKNOWN INDICATION

REACTIONS (8)
  - RENAL FAILURE [None]
  - URINARY TRACT INFECTION [None]
  - DEHYDRATION [None]
  - CONTUSION [None]
  - MALAISE [None]
  - MULTIPLE SCLEROSIS [None]
  - RENAL ATROPHY [None]
  - CONSTIPATION [None]
